FAERS Safety Report 25682088 (Version 1)
Quarter: 2025Q3

REPORT INFORMATION
  Report Type: Spontaneous
  Country: EU (occurrence: EU)
  Receive Date: 20250814
  Receipt Date: 20250814
  Transmission Date: 20251020
  Serious: Yes (Hospitalization)
  Sender: CHEPLAPHARM
  Company Number: None

PATIENT
  Age: 32 Year
  Sex: Male
  Weight: 95 kg

DRUGS (5)
  1. QUETIAPINE [Suspect]
     Active Substance: QUETIAPINE
     Indication: Brief psychotic disorder with marked stressors
     Dosage: GRADUAL INCREASE IN DOSAGE UP TO 750 MG/D; LP 0-0-1?DAILY DOSE: 750 MILLIGRAM
     Route: 048
     Dates: start: 202409
  2. ALPRAZOLAM [Suspect]
     Active Substance: ALPRAZOLAM
  3. CETIRIZINE [Suspect]
     Active Substance: CETIRIZINE HYDROCHLORIDE
     Dosage: 0-0-1?DAILY DOSE: 10 MILLIGRAM
  4. SMECTA [Suspect]
     Active Substance: MONTMORILLONITE
     Dosage: IF NEEDED 1 SACHET 3X/DAY?DAILY DOSE: 3 GRAM
  5. DESONIDE [Suspect]
     Active Substance: DESONIDE

REACTIONS (2)
  - Psoriasis [Not Recovered/Not Resolved]
  - Off label use [Unknown]

NARRATIVE: CASE EVENT DATE: 20240901
